FAERS Safety Report 22541048 (Version 2)
Quarter: 2023Q2

REPORT INFORMATION
  Report Type: Spontaneous
  Country: SK (occurrence: SK)
  Receive Date: 20230609
  Receipt Date: 20230614
  Transmission Date: 20230721
  Serious: Yes (Death, Hospitalization, Other)
  Sender: FDA-Public Use
  Company Number: SK-002147023-NVSC2023SK120123

PATIENT
  Age: 15 Month
  Sex: Male

DRUGS (2)
  1. MEDROL [Suspect]
     Active Substance: METHYLPREDNISOLONE
     Dosage: UNK
  2. ZOLGENSMA [Suspect]
     Active Substance: ONASEMNOGENE ABEPARVOVEC-XIOI
     Indication: Spinal muscular atrophy
     Dosage: UNK, SINGLE (1 X5,5 ML + 4 X8,36 ML)
     Route: 042
     Dates: start: 20220628

REACTIONS (11)
  - Death [Fatal]
  - Pneumonia [Unknown]
  - Hypotonia [Unknown]
  - Chronic respiratory failure [Unknown]
  - Hypoxia [Unknown]
  - Infantile apnoea [Unknown]
  - Loss of consciousness [Unknown]
  - Cough [Unknown]
  - Oxygen saturation decreased [Unknown]
  - C-reactive protein increased [Unknown]
  - Respiratory tract infection [Unknown]

NARRATIVE: CASE EVENT DATE: 20230523
